FAERS Safety Report 5248788-4 (Version None)
Quarter: 2007Q1

REPORT INFORMATION
  Report Type: 
  Country: None (occurrence: None)
  Receive Date: 20070228
  Receipt Date: 20060208
  Transmission Date: 20070707
  Serious: No
  Sender: FDA-Public Use
  Company Number: US-GLAXOSMITHKLINE-A0591942A

PATIENT
  Age: 50 Year
  Sex: Female

DRUGS (3)
  1. VALTREX [Suspect]
     Route: 048
  2. WELLBUTRIN [Suspect]
     Indication: DEPRESSION
     Dosage: 300MG PER DAY
     Route: 048
     Dates: start: 20051201
  3. CELEXA [Concomitant]

REACTIONS (2)
  - HEADACHE [None]
  - MENORRHAGIA [None]
